FAERS Safety Report 4888345-2 (Version None)
Quarter: 2006Q1

REPORT INFORMATION
  Report Type: 
  Country: None (occurrence: None)
  Receive Date: 20060123
  Receipt Date: 20060117
  Transmission Date: 20060701
  Serious: Yes (Other)
  Sender: FDA-Public Use
  Company Number: DE-GLAXOSMITHKLINE-D0048462A

PATIENT
  Age: 63 Year
  Sex: Male

DRUGS (2)
  1. AVANDAMET [Suspect]
     Route: 048
  2. INSULIN [Concomitant]
     Route: 065

REACTIONS (2)
  - MACULAR DEGENERATION [None]
  - RETINAL EXUDATES [None]
